FAERS Safety Report 19118271 (Version 2)
Quarter: 2021Q2

REPORT INFORMATION
  Report Type: Report from Study
  Country: CO (occurrence: CO)
  Receive Date: 20210410
  Receipt Date: 20210414
  Transmission Date: 20210717
  Serious: Yes (Death, Other)
  Sender: FDA-Public Use
  Company Number: NVSC2021CO068309

PATIENT
  Age: 80 Year
  Sex: Female

DRUGS (4)
  1. KISQALI [Suspect]
     Active Substance: RIBOCICLIB
     Indication: POSTMENOPAUSE
     Dosage: UNK
     Route: 048
  2. KISQALI [Suspect]
     Active Substance: RIBOCICLIB
     Indication: HER2 NEGATIVE BREAST CANCER
     Dosage: QD
     Route: 048
  3. FEMARA [Suspect]
     Active Substance: LETROZOLE
     Indication: BREAST CANCER
     Dosage: 2.5 MG, QD
     Route: 048
  4. FEMARA [Suspect]
     Active Substance: LETROZOLE
     Dosage: UNK
     Route: 048

REACTIONS (5)
  - Underweight [Unknown]
  - Vomiting [Unknown]
  - Death [Fatal]
  - Choking [Unknown]
  - Dysphagia [Unknown]

NARRATIVE: CASE EVENT DATE: 20210410
